FAERS Safety Report 8373838-6 (Version None)
Quarter: 2012Q2

REPORT INFORMATION
  Report Type: 
  Country: None (occurrence: None)
  Receive Date: 20120521
  Receipt Date: 20120509
  Transmission Date: 20120825
  Serious: Yes (Hospitalization)
  Sender: FDA-Public Use
  Company Number: US-ACTELION-A-US2010-37424

PATIENT

DRUGS (4)
  1. FLOLAN [Concomitant]
  2. OXYGEN [Concomitant]
  3. TRACLEER [Suspect]
     Indication: PULMONARY ARTERIAL HYPERTENSION
     Dosage: UNK
     Route: 048
     Dates: start: 20020129
  4. ADCIRCA [Concomitant]

REACTIONS (3)
  - DIARRHOEA [None]
  - DEVICE RELATED INFECTION [None]
  - NAUSEA [None]
